FAERS Safety Report 6750781-7 (Version None)
Quarter: 2010Q2

REPORT INFORMATION
  Report Type: 
  Country: None (occurrence: None)
  Receive Date: 20100602
  Receipt Date: 20100520
  Transmission Date: 20101027
  Serious: Yes (Other)
  Sender: FDA-Public Use
  Company Number: US-SHIRE-ALL1-2010-02946

PATIENT

DRUGS (2)
  1. FOSRENOL [Suspect]
     Indication: HYPERPHOSPHATAEMIA
     Dosage: 1000 MG, OTHER (WITH MEALS)
     Route: 048
     Dates: start: 20080701, end: 20100415
  2. FOSRENOL [Suspect]
     Dosage: 1000 MG, OTHER (WITH MEALS)
     Route: 048
     Dates: start: 20100507

REACTIONS (8)
  - DECREASED APPETITE [None]
  - NASOPHARYNGITIS [None]
  - RESPIRATORY TRACT INFECTION [None]
  - SINUSITIS [None]
  - THERAPY CESSATION [None]
  - VOMITING [None]
  - WHEEZING [None]
  - WRONG TECHNIQUE IN DRUG USAGE PROCESS [None]
